FAERS Safety Report 15202635 (Version 5)
Quarter: 2020Q3

REPORT INFORMATION
  Report Type: Spontaneous
  Country: PT (occurrence: PT)
  Receive Date: 20180726
  Receipt Date: 20200824
  Transmission Date: 20201102
  Serious: Yes (Hospitalization, Other)
  Sender: FDA-Public Use
  Company Number: PT-AUROBINDO-AUR-APL-2018-037164

PATIENT
  Age: 65 Year
  Sex: Female

DRUGS (5)
  1. QUETIAPINE. [Suspect]
     Active Substance: QUETIAPINE
     Indication: INSOMNIA
     Dosage: 150 MILLIGRAM, ONCE A DAY
     Route: 065
  2. SERTRALINE [Interacting]
     Active Substance: SERTRALINE HYDROCHLORIDE
     Indication: DEPRESSION
     Dosage: 100 MILLIGRAM
     Route: 065
  3. TRAZODONE [Interacting]
     Active Substance: TRAZODONE HYDROCHLORIDE
     Indication: INSOMNIA
     Dosage: 150 MILLIGRAM, ONCE A DAY
     Route: 065
  4. BIPERIDEN [Interacting]
     Active Substance: BIPERIDEN
     Indication: COGWHEEL RIGIDITY
     Dosage: UNK
     Route: 065
  5. BIPERIDEN [Interacting]
     Active Substance: BIPERIDEN
     Indication: TREMOR

REACTIONS (9)
  - Confusional state [Recovered/Resolved]
  - Tremor [Recovered/Resolved]
  - Drug interaction [Recovered/Resolved]
  - Agitation [Recovered/Resolved]
  - Serotonin syndrome [Recovered/Resolved]
  - Disorientation [Recovered/Resolved]
  - Disorganised speech [Recovered/Resolved]
  - Hyperreflexia [Recovered/Resolved]
  - Cogwheel rigidity [Recovered/Resolved]
